FAERS Safety Report 6539100-9 (Version None)
Quarter: 2010Q1

REPORT INFORMATION
  Report Type: 
  Country: None (occurrence: None)
  Receive Date: 20100115
  Receipt Date: 20100112
  Transmission Date: 20100710
  Serious: Yes (Life-Threatening, Other)
  Sender: FDA-Public Use
  Company Number: PHEH2010US00618

PATIENT
  Sex: Female

DRUGS (1)
  1. RECLAST [Suspect]
     Dosage: UNK
     Route: 042
     Dates: start: 20080101

REACTIONS (6)
  - APATHY [None]
  - BLOOD CALCIUM DECREASED [None]
  - DECREASED APPETITE [None]
  - FEELING ABNORMAL [None]
  - RENAL FAILURE [None]
  - WEIGHT DECREASED [None]
